APPROVED DRUG PRODUCT: NADOLOL
Active Ingredient: NADOLOL
Strength: 20MG
Dosage Form/Route: TABLET;ORAL
Application: A074172 | Product #001 | TE Code: AB
Applicant: RISING PHARMA HOLDINGS INC
Approved: Oct 31, 1993 | RLD: No | RS: No | Type: RX